FAERS Safety Report 8550296-X (Version None)
Quarter: 2012Q3

REPORT INFORMATION
  Report Type: 
  Country: None (occurrence: None)
  Receive Date: 20120730
  Receipt Date: 20120726
  Transmission Date: 20120928
  Serious: Yes (Other)
  Sender: FDA-Public Use
  Company Number: PHHY2012AR065137

PATIENT
  Sex: Female

DRUGS (2)
  1. NEBIVOLOL [Concomitant]
     Dosage: UNK UKN, UNK
  2. DIOVAN [Suspect]
     Indication: BLOOD PRESSURE
     Dosage: 1 TABLET (160 MG) DAILY

REACTIONS (3)
  - BRONCHIOLITIS [None]
  - ABDOMINAL DISCOMFORT [None]
  - TACHYCARDIA [None]
